FAERS Safety Report 9627997 (Version 2)
Quarter: 2013Q4

REPORT INFORMATION
  Report Type: Spontaneous
  Country: JP (occurrence: JP)
  Receive Date: 20131016
  Receipt Date: 20131120
  Transmission Date: 20140711
  Serious: No
  Sender: FDA-Public Use
  Company Number: JP-SUCAMPO PHARMA AMERICAS, INC-SPI201300721

PATIENT
  Age: 70 Year
  Sex: Female
  Weight: 46 kg

DRUGS (7)
  1. AMITIZA [Suspect]
     Indication: CONSTIPATION
     Dosage: AMITIZA
     Route: 048
     Dates: start: 20130927
  2. AZILVA [Concomitant]
     Indication: HYPERTENSION
     Dosage: 20 MG, BID
     Route: 048
     Dates: start: 20130905
  3. AMLODIPINE [Concomitant]
     Indication: HYPERTENSION
     Dosage: 5 MG, QD
     Route: 049
     Dates: start: 20130720
  4. PROTECADIN [Concomitant]
     Indication: GASTRIC ULCER
     Dosage: 10 MG, QD
     Route: 048
     Dates: start: 20130518
  5. LOTRIGA [Concomitant]
     Indication: HYPERLIPIDAEMIA
     Dosage: 2 G, QD
     Route: 048
     Dates: start: 20130518
  6. PYDOXAL [Concomitant]
     Indication: HYPOVITAMINOSIS
     Dosage: 20 MG, TID
     Route: 048
     Dates: start: 20130620, end: 20131024
  7. JUZEN TAIHOTO [Concomitant]
     Indication: DECREASED APPETITE
     Dosage: 2.5 G, TID
     Route: 048
     Dates: start: 20130518, end: 20131024

REACTIONS (3)
  - Palpitations [Recovered/Resolved]
  - Dyspnoea [Recovered/Resolved]
  - Feeling abnormal [Recovered/Resolved]
